FAERS Safety Report 12673983 (Version 7)
Quarter: 2017Q2

REPORT INFORMATION
  Report Type: Report from Study
  Country: JP (occurrence: JP)
  Receive Date: 20160822
  Receipt Date: 20170420
  Transmission Date: 20170830
  Serious: Yes (Hospitalization)
  Sender: FDA-Public Use
  Company Number: JP-PFIZER INC-2016393662

PATIENT
  Age: 81 Year
  Sex: Male
  Weight: 45 kg

DRUGS (2)
  1. IRINOTECAN HCL [Suspect]
     Active Substance: IRINOTECAN HYDROCHLORIDE
     Dosage: 120 MG/M2, UNK
     Route: 042
     Dates: start: 20160719, end: 20160801
  2. IRINOTECAN HCL [Suspect]
     Active Substance: IRINOTECAN HYDROCHLORIDE
     Indication: ADENOCARCINOMA GASTRIC
     Dosage: 215 MG, UNK
     Route: 042
     Dates: start: 20160629, end: 20160711

REACTIONS (3)
  - Dehydration [Recovered/Resolved]
  - Herpes zoster [Recovered/Resolved]
  - Decreased appetite [Recovered/Resolved]

NARRATIVE: CASE EVENT DATE: 20160809
